FAERS Safety Report 17165968 (Version 1)
Quarter: 2019Q4

REPORT INFORMATION
  Report Type: Spontaneous
  Country: US (occurrence: US)
  Receive Date: 20191217
  Receipt Date: 20191217
  Transmission Date: 20200122
  Serious: No
  Sender: FDA-Public Use
  Company Number: US-CELGENEUS-USA-20191204611

PATIENT
  Age: 61 Year
  Sex: Female

DRUGS (2)
  1. OTEZLA [Suspect]
     Active Substance: APREMILAST
     Indication: PSORIASIS
     Dosage: 10, 20, 30 MG
     Route: 048
     Dates: start: 20191206
  2. OTEZLA [Suspect]
     Active Substance: APREMILAST
     Dosage: 20 MG IN THE MORNING AND 30 MG IN THE EVENENING
     Route: 048
     Dates: start: 201912

REACTIONS (3)
  - Vomiting [Unknown]
  - Nausea [Unknown]
  - Diarrhoea [Recovered/Resolved]

NARRATIVE: CASE EVENT DATE: 20191210
